FAERS Safety Report 4926136-4 (Version None)
Quarter: 2006Q1

REPORT INFORMATION
  Report Type: 
  Country: None (occurrence: None)
  Receive Date: 20060228
  Receipt Date: 20050825
  Transmission Date: 20060701
  Serious: No
  Sender: FDA-Public Use
  Company Number: US-GLAXOSMITHKLINE-A0571838A

PATIENT
  Age: 19 Year
  Sex: Male

DRUGS (1)
  1. LAMICTAL [Suspect]
     Indication: DEPRESSION
     Dosage: 100MG PER DAY
     Route: 048
     Dates: start: 20050720

REACTIONS (2)
  - PATHOGEN RESISTANCE [None]
  - PHARYNGOLARYNGEAL PAIN [None]
